FAERS Safety Report 8533698 (Version 2)
Quarter: 2013Q1

REPORT INFORMATION
  Report Type: Spontaneous
  Country: US (occurrence: US)
  Receive Date: 20120427
  Receipt Date: 20130129
  Transmission Date: 20140127
  Serious: Yes (Hospitalization)
  Sender: FDA-Public Use
  Company Number: US-JNJFOC-20120410260

PATIENT
  Age: 41 Year
  Sex: Male
  Weight: 99.79 kg

DRUGS (3)
  1. NEOSPORIN [Suspect]
     Indication: LIMB INJURY
     Dosage: HALF DOLLAR SIZE AMOUNT
     Route: 061
     Dates: start: 20120327, end: 20120406
  2. VANCOMYCIN [Suspect]
     Indication: WOUND SECRETION
     Dosage: EVERY 8 HOURS
     Route: 042
  3. UNKNOWN MEDICATION [Concomitant]
     Route: 065

REACTIONS (6)
  - Wound secretion [Recovered/Resolved]
  - Swelling [Recovered/Resolved]
  - Pain [Recovered/Resolved]
  - Rash erythematous [Recovered/Resolved]
  - Off label use [Unknown]
  - Incorrect drug administration duration [Unknown]
